FAERS Safety Report 5677136-0 (Version None)
Quarter: 2008Q1

REPORT INFORMATION
  Report Type: 
  Country: None (occurrence: None)
  Receive Date: 20080324
  Receipt Date: 20080318
  Transmission Date: 20080703
  Serious: Yes (Hospitalization)
  Sender: FDA-Public Use
  Company Number: FR-BRISTOL-MYERS SQUIBB COMPANY-14122188

PATIENT
  Age: 66 Year
  Sex: Male

DRUGS (5)
  1. CORGARD [Suspect]
     Indication: VENTRICULAR ARRHYTHMIA
     Route: 048
     Dates: start: 20080125, end: 20080209
  2. CORDARONE [Suspect]
     Indication: VENTRICULAR ARRHYTHMIA
     Dosage: TABLET FORM. 07-FEB-2008 TO 09-FEB-2008; 12-FEB-2008 ONGOING
     Route: 048
     Dates: start: 20080207
  3. TAHOR [Suspect]
     Dosage: TABLET FORM
     Route: 048
     Dates: end: 20080209
  4. PREVISCAN [Suspect]
     Dosage: TABLET FORM
     Route: 048
     Dates: end: 20080209
  5. CARDENSIEL [Concomitant]
     Indication: VENTRICULAR ARRHYTHMIA
     Route: 048

REACTIONS (6)
  - BRADYCARDIA [None]
  - CARDIOGENIC SHOCK [None]
  - EPILEPSY [None]
  - HEPATIC FAILURE [None]
  - HYPERKALAEMIA [None]
  - RENAL FAILURE ACUTE [None]
